FAERS Safety Report 8870473 (Version 4)
Quarter: 2013Q4

REPORT INFORMATION
  Report Type: Spontaneous
  Country: GR (occurrence: GR)
  Receive Date: 20121029
  Receipt Date: 20131212
  Transmission Date: 20140711
  Serious: Yes (Hospitalization, Other)
  Sender: FDA-Public Use
  Company Number: GR-BIOGENIDEC-2012BI008981

PATIENT
  Age: 42 Year
  Sex: Male
  Weight: 82 kg

DRUGS (9)
  1. TYSABRI [Suspect]
     Indication: MULTIPLE SCLEROSIS
     Route: 042
     Dates: start: 200809, end: 20120201
  2. MODIODAL [Concomitant]
     Route: 048
  3. MIOREL [Concomitant]
     Route: 048
  4. LADOSE [Concomitant]
     Route: 048
  5. XANAX [Concomitant]
     Route: 048
  6. LIPITOR [Concomitant]
     Dates: start: 2010
  7. AMANTADINE [Concomitant]
  8. CELLCEPT [Concomitant]
  9. CORTISONE [Concomitant]
     Route: 048

REACTIONS (5)
  - Progressive multifocal leukoencephalopathy [Not Recovered/Not Resolved]
  - Epilepsy [Recovered/Resolved]
  - Immune reconstitution inflammatory syndrome [Unknown]
  - Drug eruption [Recovered/Resolved]
  - Drug-induced liver injury [Recovered/Resolved]
